FAERS Safety Report 7536116-0 (Version None)
Quarter: 2011Q2

REPORT INFORMATION
  Report Type: 
  Country: None (occurrence: None)
  Receive Date: 20110609
  Receipt Date: 20110526
  Transmission Date: 20111010
  Serious: Yes (Hospitalization, Other)
  Sender: FDA-Public Use
  Company Number: US-BAYER-201021687NA

PATIENT
  Age: 35 Year
  Sex: Female
  Weight: 99.773 kg

DRUGS (16)
  1. YAZ [Suspect]
     Indication: CONTRACEPTION
  2. RENVELA [Concomitant]
  3. NORVASC [Concomitant]
  4. ENALAPRIL MALEATE [Concomitant]
     Dosage: DAILY DOSE 10 MG
     Route: 048
  5. COLACE [Concomitant]
     Dosage: 100 MG, BID
     Route: 048
  6. RENAGEL [Concomitant]
     Dosage: 800 MG, TID
     Route: 048
  7. IMDUR [Concomitant]
     Dosage: DAILY DOSE 30 MG
     Route: 048
  8. DARVOCET [Concomitant]
     Dosage: UNK UNK, PRN
     Route: 048
  9. YAZ [Suspect]
     Indication: ACNE
     Dosage: UNK
     Dates: start: 20070101, end: 20080301
  10. METOCLOPRAMIDE [Concomitant]
     Dosage: 10 MG, TID
  11. YAZ [Suspect]
     Indication: OVARIAN CYST
  12. CLONIDINE [Concomitant]
     Dosage: 0.2 MG, BID
     Route: 048
  13. TORADOL [Concomitant]
     Indication: ABDOMINAL PAIN
     Dosage: UNK
     Dates: start: 20080811
  14. SENSIPAR [Concomitant]
  15. YAZ [Suspect]
     Indication: PREMENSTRUAL SYNDROME
  16. NEURONTIN [Concomitant]

REACTIONS (3)
  - ISCHAEMIC STROKE [None]
  - CEREBROVASCULAR ACCIDENT [None]
  - INJURY [None]
